FAERS Safety Report 9658911 (Version 1)
Quarter: 2013Q4

REPORT INFORMATION
  Report Type: Report from Study
  Country: MX (occurrence: MX)
  Receive Date: 20131030
  Receipt Date: 20131030
  Transmission Date: 20140711
  Serious: Yes (Other)
  Sender: FDA-Public Use
  Company Number: PHHY2012MX026182

PATIENT
  Sex: Female

DRUGS (2)
  1. EXFORGE HCT [Suspect]
     Indication: HYPERTENSION
     Dosage: 1 DF (160 MG VALS, 5 MG AMLO, 12.5 MG HYDR), QD
     Route: 048
     Dates: start: 20111219
  2. EXFORGE HCT [Suspect]
     Dosage: 0.5 DF (350 MG VALS, 10 MG AMLO, 25 MG HYDR), DAILY
     Route: 048

REACTIONS (2)
  - Limb discomfort [Unknown]
  - Wrong technique in drug usage process [Unknown]
